FAERS Safety Report 5771807-3 (Version None)
Quarter: 2008Q2

REPORT INFORMATION
  Report Type: 
  Country: None (occurrence: None)
  Receive Date: 20080613
  Receipt Date: 20080605
  Transmission Date: 20081010
  Serious: Yes (Hospitalization)
  Sender: FDA-Public Use
  Company Number: GB-PURDUE-DEU_2008_0004356

PATIENT
  Age: 29 Year
  Sex: Male

DRUGS (2)
  1. MST CONTINUS TABLETS [Suspect]
     Indication: DRUG ABUSE
     Dosage: UNK, SEE TEXT
     Route: 048
  2. METOCLOPRAMIDE [Concomitant]

REACTIONS (6)
  - BLOOD CREATININE INCREASED [None]
  - MIOSIS [None]
  - OVERDOSE [None]
  - RESPIRATORY RATE DECREASED [None]
  - RHABDOMYOLYSIS [None]
  - SOMNOLENCE [None]
